FAERS Safety Report 9903169 (Version 2)
Quarter: 2014Q3

REPORT INFORMATION
  Report Type: Spontaneous
  Country: US (occurrence: US)
  Receive Date: 20140217
  Receipt Date: 20140805
  Transmission Date: 20150326
  Serious: Yes (Hospitalization, Other)
  Sender: FDA-Public Use
  Company Number: US-009507513-1402USA007325

PATIENT
  Sex: Female

DRUGS (1)
  1. NUVARING [Suspect]
     Active Substance: ETHINYL ESTRADIOL\ETONOGESTREL
     Dosage: UNK
     Route: 067
     Dates: start: 20130821, end: 20131007

REACTIONS (11)
  - Cardiomegaly [Unknown]
  - Pericardial effusion [Unknown]
  - Spleen disorder [Unknown]
  - Migraine [Unknown]
  - Pulmonary embolism [Unknown]
  - Pleural effusion [Unknown]
  - Bunion operation [Unknown]
  - Deep vein thrombosis [Unknown]
  - Atelectasis [Unknown]
  - Lymphadenopathy [Unknown]
  - Nausea [Recovered/Resolved]

NARRATIVE: CASE EVENT DATE: 20131202
